FAERS Safety Report 13332547 (Version 3)
Quarter: 2017Q2

REPORT INFORMATION
  Report Type: Spontaneous
  Country: US (occurrence: US)
  Receive Date: 20170313
  Receipt Date: 20170421
  Transmission Date: 20170830
  Serious: Yes (Death, Hospitalization, Other)
  Sender: FDA-Public Use
  Company Number: US-GILEAD-2017-0262090

PATIENT
  Age: 49 Year
  Sex: Male

DRUGS (2)
  1. ZYDELIG [Suspect]
     Active Substance: IDELALISIB
     Indication: B-CELL LYMPHOMA
     Dosage: UNK
     Route: 065
     Dates: start: 20170210, end: 20170303
  2. TUMS [Concomitant]
     Active Substance: CALCIUM CARBONATE

REACTIONS (7)
  - Liver function test increased [Not Recovered/Not Resolved]
  - Non-Hodgkin^s lymphoma [Fatal]
  - Pancytopenia [Fatal]
  - Pneumonia streptococcal [Fatal]
  - Neutropenia [Unknown]
  - Streptococcal sepsis [Fatal]
  - Hypercalcaemia [Unknown]

NARRATIVE: CASE EVENT DATE: 20170222
